FAERS Safety Report 6941939-2 (Version None)
Quarter: 2010Q3

REPORT INFORMATION
  Report Type: 
  Country: None (occurrence: None)
  Receive Date: 20100826
  Receipt Date: 20100823
  Transmission Date: 20110219
  Serious: Yes (Death)
  Sender: FDA-Public Use
  Company Number: US-ASTRAZENECA-2007UW01049

PATIENT
  Age: 13547 Day
  Sex: Female
  Weight: 69.9 kg

DRUGS (4)
  1. SEROQUEL [Suspect]
     Indication: SLEEP DISORDER
     Route: 048
     Dates: start: 20030925, end: 20060405
  2. PAXIL [Concomitant]
     Dates: start: 20040101
  3. PROZAC [Concomitant]
     Dates: start: 20040101
  4. BUSPAR [Concomitant]
     Dates: start: 20040101

REACTIONS (5)
  - DEATH [None]
  - DIABETES MELLITUS INADEQUATE CONTROL [None]
  - FOOD POISONING [None]
  - ROAD TRAFFIC ACCIDENT [None]
  - TYPE 2 DIABETES MELLITUS [None]
